FAERS Safety Report 22115768 (Version 1)
Quarter: 2023Q1

REPORT INFORMATION
  Report Type: Spontaneous
  Country: FR (occurrence: FR)
  Receive Date: 20230320
  Receipt Date: 20230320
  Transmission Date: 20230418
  Serious: Yes (Other)
  Sender: FDA-Public Use
  Company Number: FR-AMERICAN REGENT INC-2023000643

PATIENT
  Age: 32 Year
  Sex: Female
  Weight: 55 kg

DRUGS (1)
  1. FERINJECT [Suspect]
     Active Substance: FERRIC CARBOXYMALTOSE
     Indication: Iron deficiency anaemia
     Dosage: 1000 MILLIGRAM, 1 IN 1 TOTAL
     Route: 042
     Dates: start: 20141210, end: 20141210

REACTIONS (1)
  - Hypnagogic hallucination [Recovered/Resolved]

NARRATIVE: CASE EVENT DATE: 20141201
